FAERS Safety Report 15681236 (Version 2)
Quarter: 2018Q4

REPORT INFORMATION
  Report Type: Spontaneous
  Country: TR (occurrence: TR)
  Receive Date: 20181203
  Receipt Date: 20181212
  Transmission Date: 20190205
  Serious: Yes (Life-Threatening, Hospitalization, Other)
  Sender: FDA-Public Use
  Company Number: TR-SA-2018SA306606

PATIENT
  Age: 64 Year
  Sex: Male

DRUGS (7)
  1. FLUOROURACIL. [Suspect]
     Active Substance: FLUOROURACIL
     Dosage: 1000 MG/M2 BIWEEKLY
  2. TACROLIMUS. [Suspect]
     Active Substance: TACROLIMUS
     Indication: IMMUNOSUPPRESSANT DRUG THERAPY
     Dosage: UNK
     Dates: start: 2006
  3. CISPLATIN. [Suspect]
     Active Substance: CISPLATIN
     Indication: METASTATIC SQUAMOUS CELL CARCINOMA
     Dosage: 30 MG/M2
  4. DOCETAXEL. [Suspect]
     Active Substance: DOCETAXEL
     Indication: METASTATIC SQUAMOUS CELL CARCINOMA
     Dosage: 60 MG/M2 DAY 1
  5. MYCOPHENOLATE MOFETIL. [Suspect]
     Active Substance: MYCOPHENOLATE MOFETIL
     Indication: IMMUNOSUPPRESSANT DRUG THERAPY
     Dosage: UNK
     Dates: start: 2006
  6. CISPLATIN. [Suspect]
     Active Substance: CISPLATIN
     Dosage: 60 MG/M2 DAY 1
  7. FLUOROURACIL. [Suspect]
     Active Substance: FLUOROURACIL
     Indication: METASTATIC SQUAMOUS CELL CARCINOMA
     Dosage: 600 MG/M2 DAY 1

REACTIONS (4)
  - Drug intolerance [Unknown]
  - Metastatic squamous cell carcinoma [Recovering/Resolving]
  - Squamous cell carcinoma of skin [Recovering/Resolving]
  - Neoplasm recurrence [Recovering/Resolving]

NARRATIVE: CASE EVENT DATE: 2012
